FAERS Safety Report 5483458-9 (Version None)
Quarter: 2007Q4

REPORT INFORMATION
  Report Type: 
  Country: None (occurrence: None)
  Receive Date: 20071012
  Receipt Date: 20071004
  Transmission Date: 20080405
  Serious: Yes (Life-Threatening)
  Sender: FDA-Public Use
  Company Number: GR-BRISTOL-MYERS SQUIBB COMPANY-13934708

PATIENT
  Age: 32 Year
  Sex: Female

DRUGS (1)
  1. GLUCOPHAGE [Suspect]
     Indication: POLYCYSTIC OVARIES
     Dosage: METFORMIN HCL WAS REDUCED TO EVERY OTHER DAY BUT WITH SAME DOSAGE (0.5 DOSAGE FORM).
     Route: 048

REACTIONS (1)
  - HYPOGLYCAEMIA [None]
